FAERS Safety Report 7523882-3 (Version None)
Quarter: 2011Q2

REPORT INFORMATION
  Report Type: 
  Country: None (occurrence: None)
  Receive Date: 20110603
  Receipt Date: 20110524
  Transmission Date: 20111010
  Serious: Yes (Death, Hospitalization)
  Sender: FDA-Public Use
  Company Number: DE-GENENTECH-308934

PATIENT
  Sex: Male
  Weight: 90 kg

DRUGS (3)
  1. BENDAMUSTINE [Suspect]
     Indication: NON-HODGKIN'S LYMPHOMA
     Dosage: 186 MG, UNK
     Route: 042
     Dates: start: 20101014
  2. RITUXIMAB [Suspect]
     Dosage: 779 MG, UNK
     Route: 042
     Dates: start: 20101013
  3. RITUXIMAB [Suspect]
     Indication: NON-HODGKIN'S LYMPHOMA
     Dosage: 779 MG, UNK
     Route: 042
     Dates: start: 20101013, end: 20101013

REACTIONS (4)
  - ACUTE RESPIRATORY DISTRESS SYNDROME [None]
  - CAPILLARY LEAK SYNDROME [None]
  - RENAL FAILURE ACUTE [None]
  - HYPOTONIA [None]
